FAERS Safety Report 7617299-0 (Version None)
Quarter: 2011Q3

REPORT INFORMATION
  Report Type: 
  Country: None (occurrence: None)
  Receive Date: 20110718
  Receipt Date: 20110704
  Transmission Date: 20111222
  Serious: Yes (Hospitalization, Other)
  Sender: FDA-Public Use
  Company Number: PHFR2011IE02982

PATIENT
  Sex: Male

DRUGS (4)
  1. OMACOR [Concomitant]
     Dosage: 5G DAILY
     Route: 048
  2. CLOZAPINE [Suspect]
     Dosage: 62.5 MG, BID
     Route: 048
  3. CLOZAPINE [Suspect]
     Indication: SCHIZOPHRENIA
     Dosage: 250 MG, UNK
     Route: 048
     Dates: start: 20110124
  4. VALPROATE SODIUM [Concomitant]
     Dosage: 400 MG, UNK

REACTIONS (5)
  - ANTIPSYCHOTIC DRUG LEVEL ABOVE THERAPEUTIC [None]
  - CONVULSION [None]
  - FALL [None]
  - CONTUSION [None]
  - MYOCLONUS [None]
